FAERS Safety Report 8855014 (Version 1)
Quarter: 2012Q4

REPORT INFORMATION
  Report Type: 
  Country: US (occurrence: US)
  Receive Date: 20121023
  Receipt Date: 20121023
  Transmission Date: 20130627
  Serious: No
  Sender: FDA-Public Use
  Company Number: US-PFIZER INC-2012261891

PATIENT
  Age: 76 Year
  Sex: Female
  Weight: 55.33 kg

DRUGS (2)
  1. ALAVERT [Suspect]
     Indication: HYPERSENSITIVITY
     Dosage: 10 mg, 1x/day
     Route: 048
     Dates: start: 201210
  2. LOSARTAN [Suspect]
     Indication: HYPERTENSION
     Dosage: 50 mg, UNK

REACTIONS (2)
  - Drug ineffective [Unknown]
  - Blood pressure increased [Unknown]
